FAERS Safety Report 15623987 (Version 1)
Quarter: 2018Q4

REPORT INFORMATION
  Report Type: Report from Study
  Country: None (occurrence: US)
  Receive Date: 20181116
  Receipt Date: 20181116
  Transmission Date: 20190205
  Serious: Yes (Other)
  Sender: FDA-Public Use
  Company Number: US-ABBVIE-18K-163-2550313-00

PATIENT
  Sex: Female

DRUGS (2)
  1. HUMIRA [Suspect]
     Active Substance: ADALIMUMAB
     Indication: PSORIATIC ARTHROPATHY
     Route: 058
  2. HUMIRA [Suspect]
     Active Substance: ADALIMUMAB
     Indication: CROHN^S DISEASE

REACTIONS (9)
  - Pain [Unknown]
  - Gastrooesophageal reflux disease [Unknown]
  - Intervertebral disc degeneration [Unknown]
  - Hypertension [Unknown]
  - Fibromyalgia [Unknown]
  - Arthralgia [Unknown]
  - Asthenia [Unknown]
  - Cerebrovascular accident [Unknown]
  - Dizziness postural [Unknown]
